FAERS Safety Report 8574114-9 (Version None)
Quarter: 2012Q3

REPORT INFORMATION
  Report Type: 
  Country: None (occurrence: None)
  Receive Date: 20120806
  Receipt Date: 20120802
  Transmission Date: 20120928
  Serious: Yes (Death, Hospitalization, Other)
  Sender: FDA-Public Use
  Company Number: PHHY2012KR066815

PATIENT
  Age: 69 Year
  Sex: Male

DRUGS (3)
  1. DOCETAXEL [Suspect]
     Indication: PROSTATE CANCER
     Dosage: 75 MG/M2, EVERY 3 WEEKS
     Route: 042
  2. DEXAMETHASONE [Concomitant]
     Dosage: 20 MG, UNK
     Route: 042
  3. PREDNISONE [Concomitant]
     Dosage: 5 MG, BID

REACTIONS (9)
  - HYPOTENSION [None]
  - INTERSTITIAL LUNG DISEASE [None]
  - PYREXIA [None]
  - SEPTIC SHOCK [None]
  - DYSPNOEA [None]
  - PRODUCTIVE COUGH [None]
  - LEUKOPENIA [None]
  - RALES [None]
  - COUGH [None]
